FAERS Safety Report 10937106 (Version 3)
Quarter: 2016Q3

REPORT INFORMATION
  Report Type: Spontaneous
  Country: US (occurrence: US)
  Receive Date: 20150321
  Receipt Date: 20160831
  Transmission Date: 20161109
  Serious: No
  Sender: FDA-Public Use
  Company Number: US-JNJFOC-20140502994

PATIENT
  Sex: Female
  Weight: 61.24 kg

DRUGS (1)
  1. TOPAMAX [Suspect]
     Active Substance: TOPIRAMATE
     Indication: EPILEPSY
     Dosage: 200MG IN MORNING, 50MG AT DINNER, AND 200MG AT BEDTIME
     Route: 048
     Dates: start: 2000, end: 2004

REACTIONS (3)
  - Drug dose omission [Unknown]
  - Body height decreased [Unknown]
  - Wrong technique in product usage process [Unknown]
